FAERS Safety Report 16488929 (Version 1)
Quarter: 2019Q2

REPORT INFORMATION
  Report Type: Spontaneous
  Country: US (occurrence: US)
  Receive Date: 20190628
  Receipt Date: 20190628
  Transmission Date: 20190711
  Serious: No
  Sender: FDA-Public Use
  Company Number: US-BIOGEN-2019BI00750036

PATIENT
  Age: 58 Year
  Sex: Female

DRUGS (2)
  1. TECFIDERA [Suspect]
     Active Substance: DIMETHYL FUMARATE
     Indication: MULTIPLE SCLEROSIS
     Dosage: STARTING DOSE
     Route: 048
     Dates: start: 20190530, end: 20190605
  2. TECFIDERA [Suspect]
     Active Substance: DIMETHYL FUMARATE
     Dosage: MAINTENANCE DOSE
     Route: 048
     Dates: start: 20190606

REACTIONS (11)
  - Fatigue [Unknown]
  - Pain of skin [Unknown]
  - Diarrhoea [Unknown]
  - Gastric disorder [Unknown]
  - Flushing [Unknown]
  - Nausea [Unknown]
  - Irritability [Unknown]
  - Therapeutic response unexpected [Recovered/Resolved with Sequelae]
  - Dizziness [Unknown]
  - Hot flush [Not Recovered/Not Resolved]
  - Pruritus [Unknown]

NARRATIVE: CASE EVENT DATE: 20190603
